FAERS Safety Report 5707796-7 (Version None)
Quarter: 2008Q2

REPORT INFORMATION
  Report Type: 
  Country: None (occurrence: None)
  Receive Date: 20080417
  Receipt Date: 20080409
  Transmission Date: 20081010
  Serious: Yes (Hospitalization)
  Sender: FDA-Public Use
  Company Number: FR-BRISTOL-MYERS SQUIBB COMPANY-14152821

PATIENT
  Age: 26 Year
  Sex: Male

DRUGS (11)
  1. CYCLOPHOSPHAMIDE [Suspect]
     Indication: ACUTE MYELOID LEUKAEMIA
     Dosage: INTERRUPTED ON 16-FEB-2008 CONT FROM 30-MAR-2008 TO 03-APR-2008
     Route: 042
     Dates: start: 20080212
  2. ETOPOSIDE [Suspect]
     Indication: ACUTE MYELOID LEUKAEMIA
     Dosage: INTERRUPTED ON 16-FEB-2008 CONT FROM 30-MAR-2008 TO 03-APR-2008
     Route: 042
     Dates: start: 20080212
  3. ALLOPURINOL [Suspect]
     Indication: PROPHYLAXIS
     Route: 048
     Dates: start: 20080211, end: 20080215
  4. EVOLTRA [Suspect]
     Indication: ACUTE MYELOID LEUKAEMIA
     Dosage: INTERRUPTED ON 16-FEB-2008 CONT FROM 30-MAR-2008 TO 03-APR-2008
     Route: 042
     Dates: start: 20080212
  5. PLITICAN [Concomitant]
  6. ZOPHREN [Concomitant]
  7. HEPARIN [Concomitant]
  8. TRIFLUCAN [Concomitant]
  9. DELURSAN [Concomitant]
  10. LEXOMIL [Concomitant]
  11. VALACYCLOVIR [Concomitant]

REACTIONS (1)
  - CHOLANGITIS [None]
